FAERS Safety Report 8243696-9 (Version None)
Quarter: 2012Q1

REPORT INFORMATION
  Report Type: 
  Country: None (occurrence: None)
  Receive Date: 20120329
  Receipt Date: 20110407
  Transmission Date: 20120608
  Serious: No
  Sender: FDA-Public Use
  Company Number: US-MYLANLABS-2010S1021777

PATIENT
  Age: 60 Year
  Sex: Female

DRUGS (11)
  1. EMSAM [Suspect]
     Indication: DEPRESSION
     Dosage: CHANGED PATCHES QD
     Route: 062
     Dates: start: 20080101
  2. CLONAZEPAM [Concomitant]
  3. ZOCOR [Concomitant]
  4. MULTI-VITAMIN [Concomitant]
  5. CYTOMEL [Concomitant]
  6. ASPIRIN [Concomitant]
  7. AMBIEN CR [Concomitant]
  8. SEROQUEL [Concomitant]
  9. EMSAM [Suspect]
     Route: 062
     Dates: start: 20080101
  10. VITAMIN D [Concomitant]
  11. LAMICTAL [Concomitant]

REACTIONS (4)
  - ANXIETY DISORDER [None]
  - DRUG EFFECT DECREASED [None]
  - APPLICATION SITE DRYNESS [None]
  - ADVERSE EVENT [None]
